FAERS Safety Report 11799566 (Version 6)
Quarter: 2019Q4

REPORT INFORMATION
  Report Type: Report from Study
  Country: AU (occurrence: AU)
  Receive Date: 20151203
  Receipt Date: 20191008
  Transmission Date: 20200122
  Serious: Yes (Other)
  Sender: FDA-Public Use
  Company Number: AU-REGENERON PHARMACEUTICALS, INC.-2015-11450

PATIENT

DRUGS (3)
  1. EYLEA [Suspect]
     Active Substance: AFLIBERCEPT
     Dosage: PATIENT RECEIVED TOTAL OF 23 INJECTIONS
     Route: 031
     Dates: start: 20180111
  2. EYLEA [Suspect]
     Active Substance: AFLIBERCEPT
     Dosage: 2 MG, EVERY 12-13 WEEKS
     Route: 031
     Dates: start: 20140101
  3. EYLEA [Suspect]
     Active Substance: AFLIBERCEPT
     Indication: NEOVASCULAR AGE-RELATED MACULAR DEGENERATION
     Dosage: 2 MG, EVERY 12-13 WEEKS
     Route: 031
     Dates: start: 20130123

REACTIONS (5)
  - Blindness transient [Unknown]
  - Dry age-related macular degeneration [Not Recovered/Not Resolved]
  - Injection site pain [Unknown]
  - Visual impairment [Not Recovered/Not Resolved]
  - Intraocular pressure increased [Not Recovered/Not Resolved]

NARRATIVE: CASE EVENT DATE: 201401
